FAERS Safety Report 5332830-6 (Version None)
Quarter: 2007Q2

REPORT INFORMATION
  Report Type: 
  Country: None (occurrence: None)
  Receive Date: 20070521
  Receipt Date: 20070507
  Transmission Date: 20071010
  Serious: Yes (Other)
  Sender: FDA-Public Use
  Company Number: 032-103

PATIENT
  Age: 62 Year
  Sex: Male

DRUGS (3)
  1. TEVETEN [Suspect]
     Indication: ESSENTIAL HYPERTENSION
     Dosage: 600 MG QD PO
     Route: 048
     Dates: start: 20050303, end: 20070502
  2. SIMVASTATIN [Concomitant]
  3. ACETYLSALICYLIC ACID SRT [Concomitant]

REACTIONS (1)
  - INTRAOCULAR PRESSURE TEST ABNORMAL [None]
